FAERS Safety Report 10885845 (Version 3)
Quarter: 2015Q2

REPORT INFORMATION
  Report Type: Report from Study
  Country: US (occurrence: US)
  Receive Date: 20150304
  Receipt Date: 20150415
  Transmission Date: 20150821
  Serious: Yes (Other)
  Sender: FDA-Public Use
  Company Number: US-BAYER-2015-031677

PATIENT
  Age: 70 Year
  Sex: Male

DRUGS (1)
  1. STIVARGA [Suspect]
     Active Substance: REGORAFENIB
     Indication: COLORECTAL CANCER
     Dosage: DAILY DOSE 120 MG
     Route: 048
     Dates: start: 20150213

REACTIONS (7)
  - Stomatitis [None]
  - Oral pain [Not Recovered/Not Resolved]
  - Blood pressure increased [Recovered/Resolved]
  - Wheezing [None]
  - Bronchitis [None]
  - Candida infection [None]
  - Cough [None]

NARRATIVE: CASE EVENT DATE: 20150213
